FAERS Safety Report 11013835 (Version 2)
Quarter: 2015Q2

REPORT INFORMATION
  Report Type: Spontaneous
  Country: US (occurrence: US)
  Receive Date: 20150412
  Receipt Date: 20150525
  Transmission Date: 20150821
  Serious: No
  Sender: FDA-Public Use
  Company Number: US-JNJFOC-20130600199

PATIENT
  Sex: Female

DRUGS (4)
  1. TRAMADOLHYDROCHLORIDE [Suspect]
     Active Substance: TRAMADOL HYDROCHLORIDE
     Indication: PAIN
     Route: 048
  2. ACETAMIONOPHEN [Suspect]
     Active Substance: ACETAMINOPHEN
     Indication: PAIN
     Route: 065
  3. TRAMADOL APAP [Suspect]
     Active Substance: TRAMADOL
     Indication: PAIN
     Route: 048
  4. ACETAMIONOPHEN [Suspect]
     Active Substance: ACETAMINOPHEN
     Route: 065

REACTIONS (9)
  - Inappropriate schedule of drug administration [Unknown]
  - Tooth disorder [Not Recovered/Not Resolved]
  - Arthritis [Not Recovered/Not Resolved]
  - Fatigue [Not Recovered/Not Resolved]
  - Osteitis [Not Recovered/Not Resolved]
  - Body height decreased [Not Recovered/Not Resolved]
  - Gait disturbance [Not Recovered/Not Resolved]
  - Sciatica [Not Recovered/Not Resolved]
  - Drug ineffective [Not Recovered/Not Resolved]
